FAERS Safety Report 25775236 (Version 2)
Quarter: 2025Q3

REPORT INFORMATION
  Report Type: Report from Study
  Country: CN (occurrence: CN)
  Receive Date: 20250909
  Receipt Date: 20250910
  Transmission Date: 20251021
  Serious: Yes (Hospitalization, Other)
  Sender: ABBVIE
  Company Number: CN-ABBVIE-6442075

PATIENT
  Age: 67 Year
  Sex: Male
  Weight: 58 kg

DRUGS (10)
  1. OZURDEX [Suspect]
     Active Substance: DEXAMETHASONE
     Indication: Diabetic retinal oedema
     Route: 050
     Dates: start: 20250623, end: 20250623
  2. OZURDEX [Suspect]
     Active Substance: DEXAMETHASONE
     Route: 050
  3. AFLIBERCEPT [Concomitant]
     Active Substance: AFLIBERCEPT
     Indication: Diabetic retinal oedema
     Route: 031
     Dates: start: 20250709, end: 20250709
  4. Mixed protamine zinc recombinant human insulin lispro injection (50R) [Concomitant]
     Indication: Type 2 diabetes mellitus
     Route: 058
     Dates: start: 20250122
  5. TELMISARTAN [Concomitant]
     Active Substance: TELMISARTAN
     Indication: Hypertension
     Route: 048
     Dates: start: 2016
  6. ASPIRIN [Concomitant]
     Active Substance: ASPIRIN
     Indication: Hypertension
     Dosage: DOSE FORM: ENTERIC-COATED TABLETS
     Route: 048
  7. NIFEDIPINE [Concomitant]
     Active Substance: NIFEDIPINE
     Indication: Hypertension
     Dosage: DOSE FORM: CONTROLLED RELEASE TABLETS.
     Route: 048
     Dates: start: 2016
  8. ACARBOSE [Concomitant]
     Active Substance: ACARBOSE
     Indication: Type 2 diabetes mellitus
     Route: 048
     Dates: start: 2004
  9. METFORMIN HYDROCHLORIDE [Concomitant]
     Active Substance: METFORMIN HYDROCHLORIDE
     Indication: Type 2 diabetes mellitus
     Route: 048
     Dates: start: 2004
  10. ATORVASTATIN CALCIUM [Concomitant]
     Active Substance: ATORVASTATIN CALCIUM
     Indication: Hypertension
     Route: 048

REACTIONS (8)
  - Cerebral infarction [Recovering/Resolving]
  - Type 2 diabetes mellitus [Recovered/Resolved]
  - Arteriosclerosis [Not Recovered/Not Resolved]
  - Diabetic vascular disorder [Recovering/Resolving]
  - Cerebral artery occlusion [Not Recovered/Not Resolved]
  - Diabetic nephropathy [Recovering/Resolving]
  - Arrhythmia [Recovering/Resolving]
  - Pulmonary mass [Not Recovered/Not Resolved]

NARRATIVE: CASE EVENT DATE: 20250711
